FAERS Safety Report 5219309-7 (Version None)
Quarter: 2007Q1

REPORT INFORMATION
  Report Type: 
  Country: None (occurrence: None)
  Receive Date: 20070125
  Receipt Date: 20070115
  Transmission Date: 20070707
  Serious: Yes (Hospitalization)
  Sender: FDA-Public Use
  Company Number: US-BRACCO-BDI-009027

PATIENT
  Age: 59 Year
  Sex: Female

DRUGS (2)
  1. MULTIHANCE [Suspect]
     Indication: NUCLEAR MAGNETIC RESONANCE IMAGING ABDOMINAL
     Dosage: 3 ML/ SEC
     Route: 042
     Dates: start: 20070115, end: 20070115
  2. MULTIHANCE [Suspect]
     Dosage: 3 ML/ SEC
     Route: 042
     Dates: start: 20070115, end: 20070115

REACTIONS (2)
  - ANAPHYLACTIC REACTION [None]
  - RENAL IMPAIRMENT [None]
